FAERS Safety Report 10511307 (Version 3)
Quarter: 2014Q4

REPORT INFORMATION
  Report Type: Spontaneous
  Country: US (occurrence: US)
  Receive Date: 20141010
  Receipt Date: 20141105
  Transmission Date: 20150528
  Serious: No
  Sender: FDA-Public Use
  Company Number: US-009507513-1409USA008727

PATIENT
  Sex: Female
  Weight: 60.32 kg

DRUGS (4)
  1. NEXPLANON [Suspect]
     Active Substance: ETONOGESTREL
     Dosage: SECOND ROD
     Route: 059
     Dates: start: 20140915, end: 20140915
  2. NEXPLANON [Suspect]
     Active Substance: ETONOGESTREL
     Indication: CONTRACEPTION
     Dosage: FOURTH ROD
     Route: 059
     Dates: start: 20140915
  3. NEXPLANON [Suspect]
     Active Substance: ETONOGESTREL
     Indication: MENORRHAGIA
     Dosage: FIRTS ROD
     Route: 059
     Dates: start: 20140915, end: 20140915
  4. NEXPLANON [Suspect]
     Active Substance: ETONOGESTREL
     Dosage: THIRD ROD
     Route: 059
     Dates: start: 20140915, end: 20140915

REACTIONS (6)
  - Device deployment issue [Recovered/Resolved]
  - Drug administration error [Unknown]
  - Overdose [Unknown]
  - No adverse event [Unknown]
  - Medical device complication [Recovered/Resolved]
  - Complication of device insertion [Recovered/Resolved]

NARRATIVE: CASE EVENT DATE: 20140915
